FAERS Safety Report 17487871 (Version 4)
Quarter: 2020Q1

REPORT INFORMATION
  Report Type: Spontaneous
  Country: DE (occurrence: DE)
  Receive Date: 20200303
  Receipt Date: 20200318
  Transmission Date: 20200409
  Serious: Yes (Death, Other)
  Sender: FDA-Public Use
  Company Number: DE-PFIZER INC-2020092417

PATIENT
  Sex: Female
  Weight: 3.7 kg

DRUGS (1)
  1. CYTOTEC [Suspect]
     Active Substance: MISOPROSTOL
     Indication: POSTMATURE BABY
     Dosage: EVERY 5 HOURS 0.25 TABLET; IN TOTAL 3 TIME
     Route: 064
     Dates: start: 20061124, end: 20061124

REACTIONS (6)
  - Foetal exposure during delivery [Unknown]
  - Circulatory failure neonatal [Fatal]
  - Neonatal hypoxia [Fatal]
  - Haemorrhage neonatal [Fatal]
  - Cardiac arrest neonatal [Fatal]
  - Oedema neonatal [Unknown]

NARRATIVE: CASE EVENT DATE: 200611
